FAERS Safety Report 9630301 (Version 1)
Quarter: 2013Q4

REPORT INFORMATION
  Report Type: Spontaneous
  Country: FR (occurrence: FR)
  Receive Date: 20131018
  Receipt Date: 20131018
  Transmission Date: 20140711
  Serious: Yes (Hospitalization)
  Sender: FDA-Public Use
  Company Number: FR-ROCHE-1289736

PATIENT
  Age: 82 Year
  Sex: Female
  Weight: 66 kg

DRUGS (10)
  1. NAPROSYNE [Suspect]
     Indication: PAIN
     Route: 048
     Dates: end: 20130728
  2. THIOCOLCHICOSIDE [Suspect]
     Indication: PAIN
     Route: 048
     Dates: end: 20130729
  3. PAROXETINE HCL [Suspect]
     Indication: DEPRESSION
     Route: 048
     Dates: end: 20130729
  4. BUSPIRONE HCL [Suspect]
     Indication: ANXIETY
     Route: 048
     Dates: end: 20130729
  5. ATENOLOL [Concomitant]
  6. ALTEIS [Concomitant]
  7. KARDEGIC [Concomitant]
  8. SIMVASTATINE [Concomitant]
  9. UVEDOSE [Concomitant]
  10. PREGABALINE [Concomitant]

REACTIONS (3)
  - Vomiting [Recovered/Resolved]
  - Diarrhoea [Recovered/Resolved]
  - Hyponatraemia [Recovered/Resolved]
